FAERS Safety Report 8801396 (Version 1)
Quarter: 2012Q4

REPORT INFORMATION
  Report Type: 
  Country: US (occurrence: US)
  Receive Date: 20120922
  Receipt Date: 20120922
  Transmission Date: 20130627
  Serious: Yes (Death, Hospitalization)
  Sender: FDA-Public Use
  Company Number: US-ABBOTT-12P-163-0981587-00

PATIENT
  Age: 55 Year
  Sex: Male

DRUGS (2)
  1. VICODIN [Suspect]
     Indication: CANCER PAIN
     Dosage: 1 PILL; TAKEN 30 MIN FROM EXCEDRIN EXTRA STRENGTH
     Dates: start: 201104, end: 201104
  2. EXCEDRIN EXTRA STRENGTH [Suspect]
     Indication: CANCER PAIN
     Dosage: 1 CAPLET; TAKEN 30 MIN FROM VICODIN
     Route: 048
     Dates: end: 201104

REACTIONS (9)
  - Wound [Unknown]
  - Exsanguination [Fatal]
  - Lung neoplasm [Unknown]
  - Hepatic neoplasm [Unknown]
  - Screaming [Unknown]
  - Pain [Unknown]
  - Thinking abnormal [Unknown]
  - Sensory disturbance [Unknown]
  - Drug ineffective [Unknown]
